FAERS Safety Report 9196394 (Version 1)
Quarter: 2013Q1

REPORT INFORMATION
  Report Type: Spontaneous
  Country: IT (occurrence: IT)
  Receive Date: 20130328
  Receipt Date: 20130328
  Transmission Date: 20140127
  Serious: Yes (Hospitalization)
  Sender: FDA-Public Use
  Company Number: IT-BRISTOL-MYERS SQUIBB COMPANY-18695767

PATIENT
  Age: 16 Year
  Sex: Female

DRUGS (2)
  1. ABILIFY TABS 5 MG [Suspect]
     Dosage: HAS TAKEN 13 5 MG TABS?ACTUAL DOSE:2 5 MG TABS/D
     Route: 048
     Dates: start: 20130204
  2. FLUOXETINE HCL [Suspect]
     Dosage: HAS TAKEN 13 20MG TABS?ACTUAL DOSE:2 20MG TABS/D
     Route: 048
     Dates: start: 20130204

REACTIONS (4)
  - Suicide attempt [Unknown]
  - Intentional overdose [Unknown]
  - Heart rate increased [Recovering/Resolving]
  - Electrocardiogram QT prolonged [Recovering/Resolving]
